FAERS Safety Report 9015714 (Version 1)
Quarter: 2013Q1

REPORT INFORMATION
  Report Type: Spontaneous
  Country: CA (occurrence: None)
  Receive Date: 20130102
  Receipt Date: 20130102
  Transmission Date: 20140127
  Serious: Yes (Hospitalization, Other)
  Sender: FDA-Public Use
  Company Number: JPI-P-027078

PATIENT
  Age: 39 Year
  Sex: Female

DRUGS (2)
  1. XYREM (500 MILLIGRAM/MILLILITERS, SOLUTION) (SODIUM OXYBATE) [Suspect]
     Indication: CATAPLEXY
     Dosage: (2.25 GM,2 IN 1 D)
     Route: 048
     Dates: start: 20090507, end: 20090520
  2. VENLAFAXINE HYDROCHLORIDE [Concomitant]

REACTIONS (11)
  - Fall [None]
  - Loss of consciousness [None]
  - Head injury [None]
  - Pain in extremity [None]
  - Neuralgia [None]
  - Malaise [None]
  - Blood pressure decreased [None]
  - Insomnia [None]
  - Paraesthesia [None]
  - Pain in extremity [None]
  - Pain in extremity [None]
